FAERS Safety Report 15600695 (Version 1)
Quarter: 2018Q4

REPORT INFORMATION
  Report Type: Report from Study
  Country: FR (occurrence: FR)
  Receive Date: 20181109
  Receipt Date: 20181109
  Transmission Date: 20190205
  Serious: Yes (Other)
  Sender: FDA-Public Use
  Company Number: FR-JAZZ-2018-FR-010308

PATIENT

DRUGS (1)
  1. DEFITELIO [Suspect]
     Active Substance: DEFIBROTIDE SODIUM
     Indication: PROPHYLAXIS
     Dosage: 25 MG/KG, QD
     Dates: start: 20180409, end: 20180525

REACTIONS (3)
  - Gastritis haemorrhagic [Unknown]
  - Coagulopathy [Unknown]
  - Embolism [Unknown]

NARRATIVE: CASE EVENT DATE: 2018
